FAERS Safety Report 25663293 (Version 1)
Quarter: 2025Q3

REPORT INFORMATION
  Report Type: Report from Study
  Country: TR (occurrence: TR)
  Receive Date: 20250811
  Receipt Date: 20250811
  Transmission Date: 20251021
  Serious: Yes (Life-Threatening, Other)
  Sender: ROCHE
  Company Number: TR-ROCHE-10000357014

PATIENT

DRUGS (34)
  1. RITUXIMAB [Suspect]
     Active Substance: RITUXIMAB
     Indication: Neoplasm malignant
     Route: 065
  2. BEVACIZUMAB [Suspect]
     Active Substance: BEVACIZUMAB
     Indication: Neoplasm malignant
     Route: 065
  3. PERTUZUMAB [Suspect]
     Active Substance: PERTUZUMAB
     Indication: Neoplasm malignant
     Route: 065
  4. IFOSFAMIDE [Suspect]
     Active Substance: IFOSFAMIDE
     Indication: Neoplasm malignant
     Route: 065
  5. CYCLOPHOSPHAMIDE [Suspect]
     Active Substance: CYCLOPHOSPHAMIDE
     Indication: Neoplasm malignant
     Route: 065
  6. MELPHALAN [Suspect]
     Active Substance: MELPHALAN
     Indication: Neoplasm malignant
     Route: 065
  7. CLOFARABINE [Suspect]
     Active Substance: CLOFARABINE
     Indication: Neoplasm malignant
     Route: 065
  8. DOXORUBICIN [Suspect]
     Active Substance: DOXORUBICIN
     Indication: Neoplasm malignant
     Route: 065
  9. EPIRUBICIN [Suspect]
     Active Substance: EPIRUBICIN
     Indication: Neoplasm malignant
     Route: 065
  10. MITOXANTRONE [Suspect]
     Active Substance: MITOXANTRONE HYDROCHLORIDE
     Indication: Neoplasm malignant
     Route: 065
  11. VINORELBINE [Suspect]
     Active Substance: VINORELBINE TARTRATE
     Indication: Neoplasm malignant
     Route: 065
  12. DACTINOMYCIN [Suspect]
     Active Substance: DACTINOMYCIN
     Indication: Neoplasm malignant
     Route: 065
  13. MITOMYCIN [Suspect]
     Active Substance: MITOMYCIN
     Indication: Neoplasm malignant
     Route: 065
  14. BLEOMYCIN [Suspect]
     Active Substance: BLEOMYCIN SULFATE
     Indication: Neoplasm malignant
     Route: 065
  15. FLUOROURACIL [Suspect]
     Active Substance: FLUOROURACIL
     Indication: Neoplasm malignant
     Route: 065
  16. FLUDARABINE [Suspect]
     Active Substance: FLUDARABINE PHOSPHATE
     Indication: Neoplasm malignant
     Route: 065
  17. GEMCITABINE [Suspect]
     Active Substance: GEMCITABINE
     Indication: Neoplasm malignant
     Route: 065
  18. DAUNORUBICIN [Suspect]
     Active Substance: DAUNORUBICIN
     Indication: Neoplasm malignant
     Route: 065
  19. METHOTREXATE [Suspect]
     Active Substance: METHOTREXATE
     Indication: Neoplasm malignant
     Route: 065
  20. PEMETREXED [Suspect]
     Active Substance: PEMETREXED
     Indication: Neoplasm malignant
     Route: 065
  21. CYTARABINE [Suspect]
     Active Substance: CYTARABINE
     Indication: Neoplasm malignant
     Route: 065
  22. ETOPOSIDE [Suspect]
     Active Substance: ETOPOSIDE
     Indication: Neoplasm malignant
     Route: 065
  23. VINBLASTINE [Suspect]
     Active Substance: VINBLASTINE
     Indication: Neoplasm malignant
     Route: 065
  24. VINCRISTINE [Suspect]
     Active Substance: VINCRISTINE
     Indication: Neoplasm malignant
     Route: 065
  25. CARBOPLATIN [Suspect]
     Active Substance: CARBOPLATIN
     Indication: Neoplasm malignant
     Route: 065
  26. OXALIPLATIN [Suspect]
     Active Substance: OXALIPLATIN
     Indication: Neoplasm malignant
     Route: 065
  27. CISPLATIN [Suspect]
     Active Substance: CISPLATIN
     Indication: Neoplasm malignant
     Route: 065
  28. DOCETAXEL [Suspect]
     Active Substance: DOCETAXEL
     Indication: Neoplasm malignant
     Route: 065
  29. PACLITAXEL [Suspect]
     Active Substance: PACLITAXEL
     Indication: Neoplasm malignant
     Route: 065
  30. IRINOTECAN [Suspect]
     Active Substance: IRINOTECAN
     Indication: Neoplasm malignant
     Route: 065
  31. TOPOTECAN [Suspect]
     Active Substance: TOPOTECAN HYDROCHLORIDE
     Indication: Neoplasm malignant
     Route: 065
  32. TRASTUZUMAB [Suspect]
     Active Substance: TRASTUZUMAB
     Indication: Neoplasm malignant
     Route: 065
  33. CETUXIMAB [Suspect]
     Active Substance: CETUXIMAB
     Indication: Neoplasm malignant
     Route: 065
  34. NELVUTAMIG [Suspect]
     Active Substance: NELVUTAMIG
     Indication: Neoplasm malignant
     Route: 065

REACTIONS (5)
  - Tachycardia [Unknown]
  - Dyspnoea [Unknown]
  - Erythema [Unknown]
  - Pruritus [Unknown]
  - Rash [Unknown]
